FAERS Safety Report 18412017 (Version 3)
Quarter: 2020Q4

REPORT INFORMATION
  Report Type: Spontaneous
  Country: JP (occurrence: JP)
  Receive Date: 20201021
  Receipt Date: 20201206
  Transmission Date: 20210114
  Serious: Yes (Hospitalization)
  Sender: FDA-Public Use
  Company Number: JP-NOVOPROD-707859

PATIENT
  Age: 80 Year
  Sex: Female
  Weight: 50 kg

DRUGS (9)
  1. NOVORAPID [Suspect]
     Active Substance: INSULIN ASPART
     Indication: TYPE 1 DIABETES MELLITUS
     Dosage: 30 IU, QD(10-10-10)
     Route: 058
     Dates: start: 201801
  2. NOVORAPID [Suspect]
     Active Substance: INSULIN ASPART
     Dosage: UNK (DOSE WAS ADJUSTED)
     Route: 058
  3. ELIQUIS [Concomitant]
     Active Substance: APIXABAN
     Indication: CEREBRAL INFARCTION
     Dosage: 5MG/DAY, BID
     Route: 048
     Dates: start: 201804
  4. TAKECAB [Concomitant]
     Active Substance: VONOPRAZAN FUMARATE
     Indication: CEREBRAL INFARCTION
     Dosage: 200 MG, QD
     Route: 048
     Dates: start: 201804
  5. SPIRONOLACTONE. [Concomitant]
     Active Substance: SPIRONOLACTONE
     Indication: AORTIC VALVE REPLACEMENT
     Dosage: 50MG/DAY, BID
     Route: 048
     Dates: start: 201804
  6. ELIQUIS [Concomitant]
     Active Substance: APIXABAN
     Indication: ATRIAL FIBRILLATION
  7. LANTUS XR [Suspect]
     Active Substance: INSULIN GLARGINE
     Indication: TYPE 1 DIABETES MELLITUS
     Dosage: 12 IU, QD
     Route: 058
     Dates: start: 201801
  8. TAKECAB [Concomitant]
     Active Substance: VONOPRAZAN FUMARATE
     Indication: ATRIAL FIBRILLATION
  9. CELECOX [Concomitant]
     Active Substance: CELECOXIB
     Indication: HUMERUS FRACTURE
     Dosage: 200MG/DAY, BID
     Route: 048
     Dates: start: 201811

REACTIONS (3)
  - Injection site mass [Recovering/Resolving]
  - Lack of injection site rotation [Unknown]
  - Diabetes mellitus inadequate control [Recovered/Resolved]
